FAERS Safety Report 6370630-9 (Version None)
Quarter: 2009Q3

REPORT INFORMATION
  Report Type: 
  Country: None (occurrence: None)
  Receive Date: 20090921
  Receipt Date: 20090921
  Transmission Date: 20100115
  Serious: Yes (Other)
  Sender: FDA-Public Use
  Company Number: None

PATIENT
  Sex: Female

DRUGS (1)
  1. VENLAFAXINE HCL EXTENDED-RELEASE [Suspect]
     Dates: start: 20090512

REACTIONS (3)
  - ANXIETY [None]
  - IRRITABILITY [None]
  - PRODUCT SUBSTITUTION ISSUE [None]
